FAERS Safety Report 21003601 (Version 1)
Quarter: 2022Q2

REPORT INFORMATION
  Report Type: Spontaneous
  Country: CH (occurrence: CH)
  Receive Date: 20220624
  Receipt Date: 20220624
  Transmission Date: 20220721
  Serious: Yes (Other)
  Sender: FDA-Public Use
  Company Number: None

PATIENT
  Age: 64 Year
  Sex: Female

DRUGS (4)
  1. KEYTRUDA [Suspect]
     Active Substance: PEMBROLIZUMAB
     Indication: Non-small cell lung cancer metastatic
     Dosage: KEYTRUDA? (PEMBROLIZUMAB) 200 MG EVERY 3 WEEKS (TOTAL OF 19 CYCLES) INTRAVENOUS
     Route: 042
     Dates: start: 20201117, end: 20211207
  2. AMLODIPINE [Concomitant]
     Active Substance: AMLODIPINE BESYLATE
     Dosage: AMLODIPIN 5 MG/TAG
     Route: 048
  3. REMERON [Concomitant]
     Active Substance: MIRTAZAPINE
     Dosage: REMERON? (MIRTAZAPIN) 30 MG/TAG
     Route: 048
  4. CIPRALEX [Concomitant]
     Active Substance: ESCITALOPRAM OXALATE
     Dosage: CIPRALEX? (ESCITALOPRAM) 20 MG/TAG
     Route: 048

REACTIONS (2)
  - Acute kidney injury [Recovered/Resolved with Sequelae]
  - Tubulointerstitial nephritis [Recovered/Resolved with Sequelae]

NARRATIVE: CASE EVENT DATE: 20211207
